FAERS Safety Report 22596240 (Version 1)
Quarter: 2023Q2

REPORT INFORMATION
  Report Type: Spontaneous
  Country: US (occurrence: US)
  Receive Date: 20230613
  Receipt Date: 20230613
  Transmission Date: 20230721
  Serious: No
  Sender: FDA-Public Use
  Company Number: US-RIGEL Pharmaceuticals, INC, - 2022FOS000900

PATIENT
  Sex: Male

DRUGS (1)
  1. TAVALISSE [Suspect]
     Active Substance: FOSTAMATINIB
     Indication: Thrombocytopenia
     Dosage: 100 MG, QD
     Route: 048
     Dates: start: 20220425

REACTIONS (3)
  - Somnolence [Unknown]
  - Blood potassium increased [Unknown]
  - Off label use [Unknown]

NARRATIVE: CASE EVENT DATE: 20220101
